FAERS Safety Report 5989381-5 (Version None)
Quarter: 2008Q4

REPORT INFORMATION
  Report Type: 
  Country: None (occurrence: None)
  Receive Date: 20081205
  Receipt Date: 20081119
  Transmission Date: 20090506
  Serious: Yes (Hospitalization, Other)
  Sender: FDA-Public Use
  Company Number: 08-001887

PATIENT
  Age: 12 Year
  Sex: Male

DRUGS (1)
  1. DURICEF [Suspect]

REACTIONS (5)
  - CARDIAC TAMPONADE [None]
  - COLLAGEN-VASCULAR DISEASE [None]
  - PERICARDITIS [None]
  - PNEUMONIA [None]
  - STREPTOCOCCAL INFECTION [None]
